FAERS Safety Report 9760304 (Version 1)
Quarter: 2013Q4

REPORT INFORMATION
  Report Type: Spontaneous
  Country: US (occurrence: US)
  Receive Date: 20131216
  Receipt Date: 20131216
  Transmission Date: 20140711
  Serious: No
  Sender: FDA-Public Use
  Company Number: US-GILEAD-2010-0029182

PATIENT
  Sex: Female
  Weight: 81.65 kg

DRUGS (11)
  1. LETAIRIS [Suspect]
     Indication: PULMONARY ARTERIAL HYPERTENSION
     Route: 048
     Dates: start: 20100426, end: 20100511
  2. INDOMETHACIN [Concomitant]
  3. XALATAN [Concomitant]
  4. AMARYL [Concomitant]
  5. NORVASC [Concomitant]
  6. ALENDRONATE [Concomitant]
  7. ASPIRIN [Concomitant]
  8. TRIAM-A [Concomitant]
  9. MOBIC [Concomitant]
  10. MULTIPLE VITAMIN WOMENS [Concomitant]
  11. REVATIO [Concomitant]

REACTIONS (1)
  - Oedema [Unknown]
